FAERS Safety Report 6234340-0 (Version None)
Quarter: 2009Q2

REPORT INFORMATION
  Report Type: 
  Country: None (occurrence: None)
  Receive Date: 20090615
  Receipt Date: 20090508
  Transmission Date: 20091009
  Serious: No
  Sender: FDA-Public Use
  Company Number: DSA_33623_2009

PATIENT
  Sex: Female

DRUGS (3)
  1. XENAZINE [Suspect]
     Indication: HUNTINGTON'S CHOREA
     Dosage: 12.5 MG BID, 12.5 MG QD, 18.75 MG, 12.5 MG IN THE MORNING AND 6.25 MG IN THE AFTERNOON
     Dates: start: 20090306, end: 20090401
  2. XENAZINE [Suspect]
     Indication: HUNTINGTON'S CHOREA
     Dosage: 12.5 MG BID, 12.5 MG QD, 18.75 MG, 12.5 MG IN THE MORNING AND 6.25 MG IN THE AFTERNOON
     Dates: start: 20090402, end: 20090401
  3. XENAZINE [Suspect]
     Indication: HUNTINGTON'S CHOREA
     Dosage: 12.5 MG BID, 12.5 MG QD, 18.75 MG, 12.5 MG IN THE MORNING AND 6.25 MG IN THE AFTERNOON
     Dates: start: 20090401

REACTIONS (2)
  - DRUG ADMINISTRATION ERROR [None]
  - INSOMNIA [None]
